FAERS Safety Report 20527613 (Version 1)
Quarter: 2022Q1

REPORT INFORMATION
  Report Type: Spontaneous
  Country: US (occurrence: US)
  Receive Date: 20220228
  Receipt Date: 20220228
  Transmission Date: 20220423
  Serious: Yes (Other)
  Sender: FDA-Public Use
  Company Number: US-JAZZ-2022-US-003687

PATIENT
  Age: 50 Year
  Sex: Female

DRUGS (1)
  1. SUNOSI [Suspect]
     Active Substance: SOLRIAMFETOL
     Indication: Hypersomnia
     Dosage: 150 MILLIGRAM

REACTIONS (26)
  - Diverticulitis [Unknown]
  - Large intestinal stenosis [Unknown]
  - Aortic valve sclerosis [Unknown]
  - Hidradenitis [Unknown]
  - Uterine leiomyoma [Unknown]
  - Hypertonic bladder [Unknown]
  - Ligament sprain [Unknown]
  - Plicated tongue [Unknown]
  - Goitre [Unknown]
  - Dysmenorrhoea [Unknown]
  - Essential hypertension [Unknown]
  - Hepatic steatosis [Unknown]
  - Heavy menstrual bleeding [Unknown]
  - Gastrooesophageal reflux disease [Unknown]
  - Glucose tolerance impaired [Unknown]
  - Sleep apnoea syndrome [Unknown]
  - Dyspnoea [Unknown]
  - Asthma [Unknown]
  - Urinary incontinence [Unknown]
  - Obesity [Unknown]
  - Lichen planus [Unknown]
  - Plicated tongue [Unknown]
  - Hypersomnia [Unknown]
  - Vitamin D deficiency [Unknown]
  - Anxiety [Unknown]
  - Chest pain [Unknown]

NARRATIVE: CASE EVENT DATE: 20140708
